FAERS Safety Report 4603563-6 (Version None)
Quarter: 2005Q1

REPORT INFORMATION
  Report Type: 
  Country: None (occurrence: None)
  Receive Date: 20050308
  Receipt Date: 20050304
  Transmission Date: 20050727
  Serious: Yes (Hospitalization)
  Sender: FDA-Public Use
  Company Number: DEWYE477604MAR05

PATIENT
  Age: 85 Year
  Sex: Female

DRUGS (6)
  1. VENLAFAXINE HCL [Suspect]
     Dosage: 75 MG PER DAY ORAL; SEE IMAGE
     Route: 048
     Dates: start: 20041103, end: 20041103
  2. VENLAFAXINE HCL [Suspect]
     Dosage: 75 MG PER DAY ORAL; SEE IMAGE
     Route: 048
     Dates: start: 20041104, end: 20041113
  3. VENLAFAXINE HCL [Suspect]
     Dosage: 75 MG PER DAY ORAL; SEE IMAGE
     Route: 048
     Dates: start: 20041114, end: 20041114
  4. RISPERDAL [Suspect]
     Dosage: 1 MG PER DAY ORAL; SEE IMAGE
     Route: 048
     Dates: start: 20041103, end: 20041103
  5. RISPERDAL [Suspect]
     Dosage: 1 MG PER DAY ORAL; SEE IMAGE
     Route: 048
     Dates: start: 20041104, end: 20041117
  6. LORAZEPAM [Concomitant]

REACTIONS (3)
  - ALANINE AMINOTRANSFERASE INCREASED [None]
  - ASPARTATE AMINOTRANSFERASE INCREASED [None]
  - DRUG INTERACTION [None]
